FAERS Safety Report 20369624 (Version 1)
Quarter: 2022Q1

REPORT INFORMATION
  Report Type: Spontaneous
  Country: US (occurrence: None)
  Receive Date: 20220121
  Receipt Date: 20220121
  Transmission Date: 20220423
  Serious: Yes (Life-Threatening, Hospitalization, Disabling)
  Sender: FDA-Public Use
  Company Number: None

PATIENT
  Age: 47 Year
  Sex: Female
  Weight: 73.35 kg

DRUGS (12)
  1. CYMBALTA [Suspect]
     Active Substance: DULOXETINE HYDROCHLORIDE
     Indication: Post-traumatic stress disorder
     Route: 048
     Dates: start: 20170401, end: 20190212
  2. CYMBALTA [Suspect]
     Active Substance: DULOXETINE HYDROCHLORIDE
     Indication: Depression
  3. CYMBALTA [Suspect]
     Active Substance: DULOXETINE HYDROCHLORIDE
     Indication: Fibromyalgia
  4. BUSPAR [Suspect]
     Active Substance: BUSPIRONE HYDROCHLORIDE
  5. TOPAMAX [Suspect]
     Active Substance: TOPIRAMATE
  6. WELLBUTRIN XL [Suspect]
     Active Substance: BUPROPION HYDROCHLORIDE
  7. PRAZOSIN [Suspect]
     Active Substance: PRAZOSIN
  8. HYDROXYZINE [Suspect]
     Active Substance: HYDROXYZINE HYDROCHLORIDE
  9. BENADRYL [Suspect]
     Active Substance: DIPHENHYDRAMINE HYDROCHLORIDE
  10. Flexaryl [Concomitant]
  11. IRON [Concomitant]
     Active Substance: IRON
  12. VITAMINS [Concomitant]
     Active Substance: VITAMINS

REACTIONS (16)
  - Product odour abnormal [None]
  - Skin odour abnormal [None]
  - Gastrointestinal disorder [None]
  - Irritable bowel syndrome [None]
  - Memory impairment [None]
  - Bradyphrenia [None]
  - Fatigue [None]
  - Anger [None]
  - Confusional state [None]
  - Muscle spasms [None]
  - Pain [None]
  - Hallucination [None]
  - Drug withdrawal syndrome [None]
  - Lactose intolerance [None]
  - Food allergy [None]
  - Food allergy [None]

NARRATIVE: CASE EVENT DATE: 20200207
